FAERS Safety Report 9798086 (Version 1)
Quarter: 2014Q1

REPORT INFORMATION
  Report Type: Spontaneous
  Country: US (occurrence: US)
  Receive Date: 20140106
  Receipt Date: 20140106
  Transmission Date: 20141002
  Serious: No
  Sender: FDA-Public Use
  Company Number: US-009507513-1401USA001136

PATIENT
  Age: 70 Year
  Sex: Female

DRUGS (1)
  1. AZASITE [Suspect]
     Dosage: UNK
     Route: 047
     Dates: start: 2013

REACTIONS (2)
  - Incorrect product storage [Unknown]
  - No adverse event [Unknown]
